FAERS Safety Report 7220169-3 (Version None)
Quarter: 2011Q1

REPORT INFORMATION
  Report Type: 
  Country: None (occurrence: None)
  Receive Date: 20110111
  Receipt Date: 20110105
  Transmission Date: 20110831
  Serious: Yes (Hospitalization)
  Sender: FDA-Public Use
  Company Number: US-JNJFOC-20110101445

PATIENT
  Sex: Male

DRUGS (4)
  1. MERCAPTOPURINE [Concomitant]
  2. INFLIXIMAB, RECOMBINANT [Suspect]
     Indication: INFLAMMATORY BOWEL DISEASE
     Route: 042
  3. PROBIOTICS [Concomitant]
  4. MULTI-VITAMINS [Concomitant]

REACTIONS (2)
  - RESPIRATORY DISORDER [None]
  - APPENDICITIS [None]
